FAERS Safety Report 5816802-0 (Version None)
Quarter: 2008Q3

REPORT INFORMATION
  Report Type: 
  Country: None (occurrence: None)
  Receive Date: 20080721
  Receipt Date: 20080714
  Transmission Date: 20090109
  Serious: Yes (Other)
  Sender: FDA-Public Use
  Company Number: PT-ABBOTT-08P-130-0463034-00

PATIENT
  Sex: Male

DRUGS (5)
  1. NORVIR [Suspect]
     Indication: HIV INFECTION
     Dates: start: 20050310
  2. STAVUDINE [Suspect]
     Indication: HIV INFECTION
     Dates: start: 20020827
  3. LAMIVUDINE [Suspect]
     Indication: HIV INFECTION
     Dates: start: 20020827
  4. INDINIVIR SULFATE [Suspect]
     Indication: HIV INFECTION
     Dates: start: 20020827
  5. INDINIVIR SULFATE [Suspect]
     Dates: start: 20050310

REACTIONS (2)
  - CD4 LYMPHOCYTES DECREASED [None]
  - LIPODYSTROPHY ACQUIRED [None]
